FAERS Safety Report 24733951 (Version 7)
Quarter: 2025Q1

REPORT INFORMATION
  Report Type: Report from Study
  Country: CA (occurrence: CA)
  Receive Date: 20241214
  Receipt Date: 20250306
  Transmission Date: 20250409
  Serious: Yes (Other)
  Sender: AMGEN
  Company Number: CA-AMGEN-CANSL2024243228

PATIENT
  Age: 71 Year
  Sex: Female

DRUGS (2)
  1. WEZLANA [Suspect]
     Active Substance: USTEKINUMAB-AUUB
     Indication: Crohn^s disease
     Dosage: 90 MILLIGRAM, Q4WK
     Route: 065
     Dates: start: 20241111, end: 20250214
  2. VANCOMYCIN [Concomitant]
     Active Substance: VANCOMYCIN
     Indication: Abdominal pain upper
     Route: 065

REACTIONS (14)
  - Angina pectoris [Recovered/Resolved]
  - Clostridium difficile infection [Unknown]
  - Crohn^s disease [Unknown]
  - Feeling abnormal [Unknown]
  - Neuralgia [Unknown]
  - Frequent bowel movements [Unknown]
  - Abdominal pain upper [Not Recovered/Not Resolved]
  - Headache [Not Recovered/Not Resolved]
  - Nausea [Unknown]
  - Inappropriate schedule of product administration [Unknown]
  - Gastrointestinal bacterial infection [Unknown]
  - Chills [Unknown]
  - Pain in extremity [Unknown]
  - Therapeutic product effect decreased [Unknown]

NARRATIVE: CASE EVENT DATE: 20241111
